FAERS Safety Report 16479835 (Version 2)
Quarter: 2019Q4

REPORT INFORMATION
  Report Type: Spontaneous
  Country: DE (occurrence: DE)
  Receive Date: 20190626
  Receipt Date: 20191009
  Transmission Date: 20200122
  Serious: Yes (Life-Threatening)
  Sender: FDA-Public Use
  Company Number: DE-TEVA-2019-DE-1068642

PATIENT
  Age: 79 Year
  Sex: Male

DRUGS (8)
  1. AMLODIPIN [Concomitant]
     Active Substance: AMLODIPINE BESYLATE
     Dosage: 10 MILLIGRAM DAILY; DAILY DOSE: 10 MG MILLGRAM(S) EVERY DAYS
  2. ASPIRIN. [Concomitant]
     Active Substance: ASPIRIN
  3. VALSARTAN. [Suspect]
     Active Substance: VALSARTAN
     Dosage: 640 MILLIGRAM DAILY; DAILY DOSE: 640 MG MILLGRAM(S) EVERY DAYS
     Dates: start: 201901
  4. INSULIN [Concomitant]
     Active Substance: INSULIN NOS
  5. LIOTHYRONIN [Concomitant]
     Active Substance: LIOTHYRONINE SODIUM
     Dosage: .02 MILLIGRAM DAILY; DAILY DOSE: 0.02 MG MILLGRAM(S) EVERY DAYS
  6. L-THYROXIN [Concomitant]
     Active Substance: LEVOTHYROXINE SODIUM
  7. LENVATINIB [Suspect]
     Active Substance: LENVATINIB
     Indication: FOLLICULAR THYROID CANCER
     Dates: start: 201802
  8. PANTOPRAZOL [Concomitant]
     Active Substance: PANTOPRAZOLE SODIUM
     Dosage: 40 MILLIGRAM DAILY; DAILY DOSE: 40 MG MILLGRAM(S) EVERY DAYS

REACTIONS (6)
  - Prescribed overdose [Recovering/Resolving]
  - Rhythm idioventricular [Recovering/Resolving]
  - Product prescribing error [Recovering/Resolving]
  - Acute kidney injury [Recovering/Resolving]
  - Hyperkalaemia [Recovering/Resolving]
  - Sinus arrest [Recovering/Resolving]

NARRATIVE: CASE EVENT DATE: 201901
